FAERS Safety Report 21510763 (Version 1)
Quarter: 2022Q4

REPORT INFORMATION
  Report Type: Spontaneous
  Country: US (occurrence: US)
  Receive Date: 20221026
  Receipt Date: 20221026
  Transmission Date: 20230113
  Serious: No
  Sender: FDA-Public Use
  Company Number: US-BAUSCH-BL-2022-023815

PATIENT
  Age: 79 Year
  Sex: Female
  Weight: 45.854 kg

DRUGS (4)
  1. DILTIAZEM [Suspect]
     Active Substance: DILTIAZEM
     Indication: Product used for unknown indication
     Route: 065
  2. REMODULIN [Suspect]
     Active Substance: TREPROSTINIL
     Indication: Pulmonary arterial hypertension
     Route: 058
     Dates: start: 20210311, end: 2022
  3. REMODULIN [Suspect]
     Active Substance: TREPROSTINIL
     Dosage: DOSE 0.016 MICROGRAM/KG
     Route: 058
     Dates: start: 2022, end: 2022
  4. OPSUMIT [Suspect]
     Active Substance: MACITENTAN
     Indication: Product used for unknown indication
     Route: 065

REACTIONS (5)
  - Arthritis [Unknown]
  - Somnolence [Unknown]
  - Balance disorder [Recovering/Resolving]
  - Dyspnoea [Unknown]
  - Dizziness [Unknown]
